FAERS Safety Report 12114645 (Version 4)
Quarter: 2016Q1

REPORT INFORMATION
  Report Type: Report from Study
  Country: IL (occurrence: IL)
  Receive Date: 20160225
  Receipt Date: 20160318
  Transmission Date: 20160526
  Serious: Yes (Hospitalization)
  Sender: FDA-Public Use
  Company Number: IL-SA-2016SA034369

PATIENT
  Age: 47 Year
  Sex: Female

DRUGS (2)
  1. LEMTRADA [Suspect]
     Active Substance: ALEMTUZUMAB
     Indication: MULTIPLE SCLEROSIS
     Route: 042
     Dates: start: 20141028
  2. LEMTRADA [Suspect]
     Active Substance: ALEMTUZUMAB
     Indication: MULTIPLE SCLEROSIS
     Route: 042
     Dates: start: 20151028

REACTIONS (8)
  - Vomiting [Unknown]
  - Heart rate increased [Unknown]
  - Mechanical ventilation [Not Recovered/Not Resolved]
  - Encephalitis [Unknown]
  - Pain [Unknown]
  - Meningitis [Unknown]
  - Loss of consciousness [Not Recovered/Not Resolved]
  - Guillain-Barre syndrome [Unknown]

NARRATIVE: CASE EVENT DATE: 20160222
